FAERS Safety Report 13929386 (Version 1)
Quarter: 2017Q3

REPORT INFORMATION
  Report Type: Spontaneous
  Country: US (occurrence: US)
  Receive Date: 20170901
  Receipt Date: 20170901
  Transmission Date: 20171127
  Serious: Yes (Hospitalization, Other)
  Sender: FDA-Public Use
  Company Number: US-EPIC PHARMA LLC-2017EPC00186

PATIENT
  Sex: Male
  Weight: 79.37 kg

DRUGS (7)
  1. VENLAFAXINE ER [Concomitant]
     Active Substance: VENLAFAXINE HYDROCHLORIDE
  2. DEXTROAMPHET SACCHARAT, AMPHET ASPARTATE, DEXTROAMPHET SULFATE AND AMPHET SULFAT [Suspect]
     Active Substance: AMPHETAMINE ASPARTATE\AMPHETAMINE SULFATE\DEXTROAMPHETAMINE SACCHARATE\DEXTROAMPHETAMINE SULFATE
     Indication: ATTENTION DEFICIT/HYPERACTIVITY DISORDER
     Dosage: 30 MG, UNK
     Route: 048
  3. DEXTROAMPHET SACCHARAT, AMPHET ASPARTATE, DEXTROAMPHET SULFATE AND AMPHET SULFAT [Suspect]
     Active Substance: AMPHETAMINE ASPARTATE\AMPHETAMINE SULFATE\DEXTROAMPHETAMINE SACCHARATE\DEXTROAMPHETAMINE SULFATE
     Dosage: UNK
  4. CARBAMAZEPINE. [Suspect]
     Active Substance: CARBAMAZEPINE
     Dosage: UNK
  5. ALPRAZOLAM. [Concomitant]
     Active Substance: ALPRAZOLAM
  6. AMOXICILLIN. [Concomitant]
     Active Substance: AMOXICILLIN
     Dosage: UNK, AS NEEDED
  7. IBUPROFEN. [Concomitant]
     Active Substance: IBUPROFEN
     Dosage: UNK, AS NEEDED

REACTIONS (16)
  - Psychotic disorder [Recovered/Resolved]
  - Drug abuse [Unknown]
  - Malaise [Unknown]
  - Aggression [Not Recovered/Not Resolved]
  - Neoplasm [Unknown]
  - Sexual dysfunction [Unknown]
  - Eating disorder [Not Recovered/Not Resolved]
  - Middle ear disorder [Unknown]
  - Mania [Not Recovered/Not Resolved]
  - Insomnia [Not Recovered/Not Resolved]
  - Bacterial infection [Unknown]
  - Confusional state [Not Recovered/Not Resolved]
  - Ear infection [Unknown]
  - Abnormal behaviour [Recovered/Resolved]
  - Tympanic membrane perforation [Unknown]
  - Amnesia [Unknown]

NARRATIVE: CASE EVENT DATE: 2015
